FAERS Safety Report 21925114 (Version 2)
Quarter: 2023Q1

REPORT INFORMATION
  Report Type: Spontaneous
  Country: AU (occurrence: AU)
  Receive Date: 20230130
  Receipt Date: 20230202
  Transmission Date: 20230418
  Serious: Yes (Other)
  Sender: FDA-Public Use
  Company Number: AU-MYLANLABS-2023M1008430

PATIENT
  Sex: Male

DRUGS (6)
  1. CLOZARIL [Suspect]
     Active Substance: CLOZAPINE
     Indication: Schizophrenia
     Dosage: 200 MILLIGRAM
     Route: 048
     Dates: start: 20210308
  2. QUETIAPINE [Concomitant]
     Active Substance: QUETIAPINE
     Dosage: 1200 MILLIGRAM (NOCTE)
     Route: 048
  3. LITHIUM [Concomitant]
     Active Substance: LITHIUM
     Dosage: 500 MILLIGRAM, BID
     Route: 048
  4. PERINDOPRIL [Concomitant]
     Active Substance: PERINDOPRIL
     Dosage: 4 MILLIGRAM (MANE)
     Route: 048
  5. MAGNESIUM T [Concomitant]
     Dosage: UNK (DAILY)
     Route: 048
  6. BISOPROLOL [Concomitant]
     Active Substance: BISOPROLOL
     Dosage: UNK
     Route: 065

REACTIONS (5)
  - Hallucination, auditory [Not Recovered/Not Resolved]
  - Myocarditis [Unknown]
  - Psychotic symptom [Not Recovered/Not Resolved]
  - Paranoia [Not Recovered/Not Resolved]
  - Ejection fraction abnormal [Unknown]
